FAERS Safety Report 5360150-2 (Version None)
Quarter: 2007Q2

REPORT INFORMATION
  Report Type: 
  Country: None (occurrence: None)
  Receive Date: 20070618
  Receipt Date: 20070613
  Transmission Date: 20071010
  Serious: Yes (Hospitalization)
  Sender: FDA-Public Use
  Company Number: PHEH2007US08735

PATIENT
  Age: 84 Year
  Sex: Female

DRUGS (2)
  1. DYAZIDE [Concomitant]
     Dosage: UNK, UNK
  2. DIOVAN [Suspect]
     Indication: HYPERTENSION
     Dosage: 320 MG, QD
     Route: 048

REACTIONS (1)
  - INTESTINAL INFARCTION [None]
